FAERS Safety Report 5045655-6 (Version None)
Quarter: 2006Q3

REPORT INFORMATION
  Report Type: 
  Country: None (occurrence: None)
  Receive Date: 20060707
  Receipt Date: 20060703
  Transmission Date: 20061208
  Serious: Yes (Hospitalization)
  Sender: FDA-Public Use
  Company Number: FR-BOEHRINGER INGELHEIM PHARMACEUTICALS, INC.-2006-BP-07665YA

PATIENT
  Age: 56 Year
  Sex: Male

DRUGS (1)
  1. TAMSULOSIN HCL [Suspect]
     Route: 048
     Dates: start: 20051101, end: 20060101

REACTIONS (3)
  - HEPATITIS [None]
  - JAUNDICE [None]
  - WEIGHT DECREASED [None]
